FAERS Safety Report 19254936 (Version 2)
Quarter: 2023Q2

REPORT INFORMATION
  Report Type: Report from Study
  Country: JP (occurrence: JP)
  Receive Date: 20210513
  Receipt Date: 20230629
  Transmission Date: 20230721
  Serious: Yes (Other)
  Sender: FDA-Public Use
  Company Number: JP-EMA-20170403-ASHISHVP-093610286

PATIENT
  Age: 6 Year
  Sex: Female

DRUGS (15)
  1. MELPHALAN [Suspect]
     Active Substance: MELPHALAN
     Indication: Acute lymphocytic leukaemia
     Dosage: 180 MG/M2
     Route: 065
  2. THYMOCYTE IMMUNE GLOBULIN NOS [Suspect]
     Active Substance: THYMOCYTE IMMUNE GLOBULIN NOS
     Indication: Prophylaxis against graft versus host disease
     Dosage: (1.25-2.5 MG/KG) ON DAYS ?2 AND ?1
     Route: 042
  3. BUSULFAN [Suspect]
     Active Substance: BUSULFAN
     Indication: Haematological malignancy
     Dosage: 0.5 MILLIGRAM/KILOGRAM
     Route: 065
  4. BUSULFAN [Suspect]
     Active Substance: BUSULFAN
     Dosage: 4.6 MILLIGRAM/KILOGRAM
     Route: 065
  5. BUSULFAN [Suspect]
     Active Substance: BUSULFAN
     Dosage: 2.86 MILLIGRAM/KILOGRAM
     Route: 042
  6. CLOFARABINE [Suspect]
     Active Substance: CLOFARABINE
     Indication: Haematological malignancy
     Dosage: 40 MG/M2, ONCE A DAY
     Route: 042
  7. CLOFARABINE [Suspect]
     Active Substance: CLOFARABINE
     Dosage: UNK
     Route: 065
  8. CYCLOPHOSPHAMIDE [Suspect]
     Active Substance: CYCLOPHOSPHAMIDE
     Indication: Acute lymphocytic leukaemia
     Dosage: 180 MILLIGRAM/KILOGRAM
     Route: 065
  9. DEXAMETHASONE [Suspect]
     Active Substance: DEXAMETHASONE
     Indication: Prophylaxis
     Dosage: 10 MG/M2, ONCE A DAY
     Route: 065
  10. ETOPOSIDE [Suspect]
     Active Substance: ETOPOSIDE
     Indication: Acute lymphocytic leukaemia
     Dosage: 60 MILLIGRAM/KILOGRAM
     Route: 065
  11. METHOTREXATE [Suspect]
     Active Substance: METHOTREXATE
     Indication: Prophylaxis against graft versus host disease
     Dosage: 15 MG/M2
     Route: 065
  12. METHOTREXATE [Suspect]
     Active Substance: METHOTREXATE
     Dosage: 10 UNK
     Route: 065
  13. PREDNISOLONE [Suspect]
     Active Substance: PREDNISOLONE
     Indication: Prophylaxis against graft versus host disease
     Dosage: 1 MILLIGRAM/KILOGRAM, ONCE A DAY
     Route: 065
  14. TACROLIMUS [Suspect]
     Active Substance: TACROLIMUS
     Indication: Prophylaxis against graft versus host disease
     Dosage: CONTINUOUS I.V. FROM DAY ?1; TARGETED BLOOD CONCENTRATION = 8-10 NG/ML
     Route: 042
  15. URSODIOL [Suspect]
     Active Substance: URSODIOL
     Indication: Prophylaxis
     Dosage: UNK
     Route: 065

REACTIONS (8)
  - Stomatitis [Unknown]
  - Febrile neutropenia [Unknown]
  - Drug resistance [Unknown]
  - Hypertension [Unknown]
  - Alanine aminotransferase increased [Unknown]
  - Viral infection [Unknown]
  - Enterocolitis viral [Recovering/Resolving]
  - Adenovirus infection [Recovering/Resolving]
